FAERS Safety Report 13746826 (Version 1)
Quarter: 2017Q3

REPORT INFORMATION
  Report Type: Spontaneous
  Country: FR (occurrence: FR)
  Receive Date: 20170712
  Receipt Date: 20170712
  Transmission Date: 20171127
  Serious: Yes (Hospitalization)
  Sender: FDA-Public Use
  Company Number: FR-BAYER-2017-132135

PATIENT
  Sex: Female

DRUGS (1)
  1. MIRENA [Suspect]
     Active Substance: LEVONORGESTREL
     Dosage: 20 MCG/24HR, CONT
     Route: 015
     Dates: start: 20140408, end: 20170531

REACTIONS (15)
  - Paraesthesia oral [Unknown]
  - Depression [Unknown]
  - Nausea [Unknown]
  - Anger [Unknown]
  - Vertigo [Unknown]
  - Visual impairment [Unknown]
  - Back pain [Unknown]
  - Abdominal pain lower [Unknown]
  - Negative thoughts [Unknown]
  - Palpitations [Unknown]
  - Tinnitus [Unknown]
  - Chest pain [Unknown]
  - Hypertension [Unknown]
  - Insomnia [Unknown]
  - Fatigue [Unknown]
